FAERS Safety Report 20076265 (Version 1)
Quarter: 2021Q4

REPORT INFORMATION
  Report Type: Spontaneous
  Country: US (occurrence: None)
  Receive Date: 20211116
  Receipt Date: 20211116
  Transmission Date: 20220303
  Serious: No
  Sender: FDA-Public Use
  Company Number: 2021A800924

PATIENT
  Age: 22381 Day
  Sex: Female
  Weight: 103.9 kg

DRUGS (5)
  1. FASENRA [Suspect]
     Active Substance: BENRALIZUMAB
     Indication: Asthma
     Route: 058
     Dates: start: 20211102, end: 20211102
  2. VITAMIN D [Concomitant]
     Active Substance: VITAMIN D NOS
  3. ALBUTEROL [Concomitant]
     Active Substance: ALBUTEROL
  4. SYMBICORT [Concomitant]
     Active Substance: BUDESONIDE\FORMOTEROL FUMARATE DIHYDRATE
  5. SINGULAIR [Concomitant]
     Active Substance: MONTELUKAST SODIUM

REACTIONS (5)
  - Dizziness [Recovered/Resolved]
  - Blood pressure decreased [Recovered/Resolved]
  - Lethargy [Recovered/Resolved]
  - Headache [Recovered/Resolved]
  - Swollen tongue [Recovered/Resolved]

NARRATIVE: CASE EVENT DATE: 20211102
